FAERS Safety Report 4592624-6 (Version None)
Quarter: 2005Q1

REPORT INFORMATION
  Report Type: 
  Country: None (occurrence: None)
  Receive Date: 20050222
  Receipt Date: 20050207
  Transmission Date: 20050727
  Serious: Yes (Hospitalization)
  Sender: FDA-Public Use
  Company Number: 2005026929

PATIENT
  Age: 63 Year
  Sex: Female
  Weight: 71 kg

DRUGS (3)
  1. EPIRUBICIN [Suspect]
     Indication: BREAST CANCER
     Dosage: 100 MG, INTRAVENOUS
     Route: 042
     Dates: start: 20050110
  2. FLUOROURACIL [Suspect]
     Indication: BREAST CANCER
     Dosage: 850 MG, INTRAVENOUS
     Route: 042
     Dates: start: 20050110
  3. CYCLOPHOSPHAMIDE [Suspect]
     Indication: BREAST CANCER
     Dosage: 150 MG, ORAL
     Route: 048
     Dates: start: 20050110

REACTIONS (2)
  - CEREBRAL INFARCTION [None]
  - MONOPARESIS [None]
